FAERS Safety Report 21263049 (Version 1)
Quarter: 2022Q3

REPORT INFORMATION
  Report Type: Spontaneous
  Country: US (occurrence: None)
  Receive Date: 20220826
  Receipt Date: 20220826
  Transmission Date: 20221027
  Serious: Yes (unspecified)
  Sender: FDA-Public Use
  Company Number: None

PATIENT
  Sex: 0

DRUGS (2)
  1. CICLOPIROX OLAMINE [Suspect]
     Active Substance: CICLOPIROX OLAMINE
     Indication: Rash erythematous
     Route: 061
     Dates: start: 20220525, end: 20220826
  2. TACROLIMUS [Suspect]
     Active Substance: TACROLIMUS
     Indication: Rash erythematous
     Dosage: 1 0.1% DAILY TOPICAL? ?
     Route: 061

REACTIONS (4)
  - Application site rash [None]
  - Drug ineffective [None]
  - Immune system disorder [None]
  - Rash [None]

NARRATIVE: CASE EVENT DATE: 20220513
